FAERS Safety Report 5767884-6 (Version None)
Quarter: 2008Q2

REPORT INFORMATION
  Report Type: 
  Country: None (occurrence: None)
  Receive Date: 20080612
  Receipt Date: 20080602
  Transmission Date: 20081010
  Serious: Yes (Other)
  Sender: FDA-Public Use
  Company Number: BR-PFIZER INC-2008046115

PATIENT
  Sex: Male
  Weight: 80 kg

DRUGS (11)
  1. CELEBRA [Suspect]
     Indication: JOINT EFFUSION
     Dosage: DAILY DOSE:400MG
     Route: 048
     Dates: start: 20080501, end: 20080501
  2. LOSARTAN POTASSIUM [Concomitant]
  3. VERAPAMIL [Concomitant]
     Route: 048
  4. HYDROCHLOROTHIAZIDE [Concomitant]
  5. GLYBURIDE [Concomitant]
     Route: 048
  6. WARFARIN SODIUM [Concomitant]
     Route: 048
  7. DRUG, UNSPECIFIED [Concomitant]
  8. ALL OTHER THERAPEUTIC PRODUCTS [Concomitant]
     Route: 048
  9. SOYA LECITHIN [Concomitant]
  10. LOSARTAN POTASSIUM [Concomitant]
  11. ALL OTHER THERAPEUTIC PRODUCTS [Concomitant]
     Route: 048

REACTIONS (2)
  - DYSPNOEA [None]
  - INTENTIONAL DRUG MISUSE [None]
